FAERS Safety Report 22318010 (Version 1)
Quarter: 2023Q2

REPORT INFORMATION
  Report Type: Spontaneous
  Country: US (occurrence: US)
  Receive Date: 20230515
  Receipt Date: 20230515
  Transmission Date: 20230722
  Serious: No
  Sender: FDA-Public Use
  Company Number: US-UCBSA-2022032327

PATIENT
  Sex: Female

DRUGS (1)
  1. NEUPRO [Suspect]
     Active Substance: ROTIGOTINE
     Indication: Restless legs syndrome
     Dosage: 3 MILLIGRAM, DAILY
     Route: 062
     Dates: start: 20200601

REACTIONS (2)
  - Pruritus [Not Recovered/Not Resolved]
  - Application site erythema [Not Recovered/Not Resolved]
